FAERS Safety Report 8860527 (Version 1)
Quarter: 2012Q4

REPORT INFORMATION
  Report Type: 
  Country: FR (occurrence: FR)
  Receive Date: 20121025
  Receipt Date: 20121025
  Transmission Date: 20130627
  Serious: Yes (Other)
  Sender: FDA-Public Use
  Company Number: FR-ASTELLAS-2012JP009990

PATIENT
  Age: 11 Year
  Sex: Male

DRUGS (3)
  1. TACROLIMUS [Suspect]
     Indication: NEPHROTIC SYNDROME
     Dosage: 8 mg, UID/QD
     Route: 065
  2. TACROLIMUS [Interacting]
     Dosage: 3 mg, bid
     Route: 065
  3. JOSAMYCIN [Interacting]
     Indication: EAR INFECTION
     Route: 065

REACTIONS (7)
  - Overdose [Recovering/Resolving]
  - Immunosuppressant drug level increased [Recovering/Resolving]
  - Renal failure acute [Recovering/Resolving]
  - Status epilepticus [Recovering/Resolving]
  - Posterior reversible encephalopathy syndrome [Recovering/Resolving]
  - Acute pulmonary oedema [Recovering/Resolving]
  - Drug interaction [Recovering/Resolving]
